FAERS Safety Report 20158365 (Version 2)
Quarter: 2022Q4

REPORT INFORMATION
  Report Type: Spontaneous
  Country: US (occurrence: US)
  Receive Date: 20211207
  Receipt Date: 20221018
  Transmission Date: 20230112
  Serious: No
  Sender: FDA-Public Use
  Company Number: US-SA-SAC20211202001240

PATIENT
  Age: 73 Year
  Sex: Female

DRUGS (4)
  1. DUPIXENT [Suspect]
     Active Substance: DUPILUMAB
     Indication: Sinus polyp
     Dosage: 300 MG, QOW
     Route: 058
     Dates: start: 20201020
  2. DUPIXENT [Suspect]
     Active Substance: DUPILUMAB
     Dosage: 300 MG, QOW
     Route: 058
     Dates: start: 20220201
  3. VITAMIN D NOS [Concomitant]
     Active Substance: VITAMIN D NOS
  4. CALCIUM [Concomitant]
     Active Substance: CALCIUM

REACTIONS (2)
  - Musculoskeletal stiffness [Not Recovered/Not Resolved]
  - Product use in unapproved indication [Unknown]

NARRATIVE: CASE EVENT DATE: 20201020
